FAERS Safety Report 22614328 (Version 2)
Quarter: 2024Q2

REPORT INFORMATION
  Report Type: Spontaneous
  Country: US (occurrence: US)
  Receive Date: 20230619
  Receipt Date: 20240621
  Transmission Date: 20240715
  Serious: Yes (Hospitalization, Other)
  Sender: FDA-Public Use
  Company Number: US-ABBVIE-5291487

PATIENT
  Age: 30 Year
  Sex: Female
  Weight: 38 kg

DRUGS (2)
  1. HUMIRA [Suspect]
     Active Substance: ADALIMUMAB
     Indication: Crohn^s disease
     Dosage: FORM STRENGTH: 40 MILLIGRAM
     Route: 058
     Dates: start: 202303, end: 202305
  2. HUMIRA [Suspect]
     Active Substance: ADALIMUMAB
     Dosage: DOSE STRENGTH: 40 MILLIGRAM
     Route: 058

REACTIONS (7)
  - Pain [Not Recovered/Not Resolved]
  - Large intestine infection [Not Recovered/Not Resolved]
  - Device breakage [Not Recovered/Not Resolved]
  - Gastrointestinal oedema [Not Recovered/Not Resolved]
  - Large intestinal obstruction [Recovering/Resolving]
  - Fear [Not Recovered/Not Resolved]
  - Feeding disorder [Not Recovered/Not Resolved]

NARRATIVE: CASE EVENT DATE: 20230601
